FAERS Safety Report 9601874 (Version 1)
Quarter: 2013Q4

REPORT INFORMATION
  Report Type: Spontaneous
  Country: US (occurrence: None)
  Receive Date: 20131004
  Receipt Date: 20131004
  Transmission Date: 20140711
  Serious: Yes (Other)
  Sender: FDA-Public Use
  Company Number: None

PATIENT
  Sex: Male

DRUGS (1)
  1. RIBAPACK [Suspect]
     Indication: HEPATITIS C
     Route: 048
     Dates: start: 20121019, end: 20130705

REACTIONS (1)
  - Hepatic cancer [None]
